FAERS Safety Report 8587714-7 (Version None)
Quarter: 2012Q3

REPORT INFORMATION
  Report Type: 
  Country: None (occurrence: None)
  Receive Date: 20120813
  Receipt Date: 20120807
  Transmission Date: 20120928
  Serious: Yes (Hospitalization)
  Sender: FDA-Public Use
  Company Number: US-AMGEN-USASP2012049568

PATIENT
  Age: 72 Year
  Sex: Female

DRUGS (1)
  1. ENBREL [Suspect]
     Indication: RHEUMATOID ARTHRITIS
     Dosage: 50 MG, QWK
     Dates: start: 20040305

REACTIONS (9)
  - BLOOD POTASSIUM DECREASED [None]
  - OEDEMA PERIPHERAL [None]
  - BLOOD SODIUM DECREASED [None]
  - OROPHARYNGEAL CANDIDIASIS [None]
  - ABDOMINAL PAIN UPPER [None]
  - RHEUMATOID ARTHRITIS [None]
  - WOUND INFECTION STAPHYLOCOCCAL [None]
  - CONSTIPATION [None]
  - HIP ARTHROPLASTY [None]
